FAERS Safety Report 25214186 (Version 1)
Quarter: 2025Q2

REPORT INFORMATION
  Report Type: Spontaneous
  Country: CN (occurrence: CN)
  Receive Date: 20250418
  Receipt Date: 20250418
  Transmission Date: 20250717
  Serious: Yes (Hospitalization, Disabling, Other)
  Sender: PFIZER
  Company Number: CN-PFIZER INC-PV202500044374

PATIENT
  Age: 16 Month
  Sex: Female
  Weight: 9 kg

DRUGS (1)
  1. CRIZOTINIB [Suspect]
     Active Substance: CRIZOTINIB
     Indication: Symptomatic treatment
     Dosage: 100 MG, 2X/DAY
     Route: 048
     Dates: start: 20250129, end: 20250330

REACTIONS (2)
  - Pneumonia [Not Recovered/Not Resolved]
  - Off label use [Unknown]

NARRATIVE: CASE EVENT DATE: 20250129
